FAERS Safety Report 7153082-0 (Version None)
Quarter: 2010Q4

REPORT INFORMATION
  Report Type: 
  Country: None (occurrence: None)
  Receive Date: 20101209
  Receipt Date: 20101209
  Transmission Date: 20110411
  Serious: Yes (Other)
  Sender: FDA-Public Use
  Company Number: None

PATIENT
  Sex: Female

DRUGS (2)
  1. HYZAAR [Suspect]
     Indication: HYPERTENSION
     Dosage: 100/12.5 QD
     Dates: start: 20100803, end: 20100810
  2. LOSARTAN POTASSIUM AND HYDROCHLOROTHIAZIDE [Suspect]

REACTIONS (3)
  - DIZZINESS [None]
  - HEADACHE [None]
  - HYPERTENSIVE CRISIS [None]
